FAERS Safety Report 6912896-X (Version None)
Quarter: 2010Q3

REPORT INFORMATION
  Report Type: 
  Country: None (occurrence: None)
  Receive Date: 20100806
  Receipt Date: 20090310
  Transmission Date: 20110219
  Serious: No
  Sender: FDA-Public Use
  Company Number: US-PFIZER INC-2009153727

PATIENT

DRUGS (2)
  1. DETROL LA [Suspect]
  2. OXYBUTYNIN CHLORIDE [Suspect]

REACTIONS (1)
  - URINARY TRACT INFECTION [None]
